FAERS Safety Report 8051812-7 (Version None)
Quarter: 2012Q1

REPORT INFORMATION
  Report Type: 
  Country: None (occurrence: None)
  Receive Date: 20120118
  Receipt Date: 20100707
  Transmission Date: 20120608
  Serious: Yes (Other)
  Sender: FDA-Public Use
  Company Number: US-BAYER-201027492NA

PATIENT
  Sex: Female

DRUGS (2)
  1. YAZ [Suspect]
     Indication: ACNE
     Route: 048
     Dates: start: 20071001
  2. YASMIN [Suspect]
     Indication: ACNE
     Route: 048
     Dates: start: 20071001

REACTIONS (1)
  - GALLBLADDER DISORDER [None]
